FAERS Safety Report 4562129-7 (Version None)
Quarter: 2005Q1

REPORT INFORMATION
  Report Type: 
  Country: None (occurrence: None)
  Receive Date: 20050124
  Receipt Date: 20050114
  Transmission Date: 20050727
  Serious: Yes (Other)
  Sender: FDA-Public Use
  Company Number: 2003123615

PATIENT
  Age: 63 Year
  Sex: Female
  Weight: 83.9154 kg

DRUGS (19)
  1. LIPITOR [Suspect]
     Indication: ILL-DEFINED DISORDER
     Dates: end: 20030821
  2. NORVASC [Suspect]
     Indication: ILL-DEFINED DISORDER
  3. ACCUPRIL [Suspect]
     Indication: ILL-DEFINED DISORDER
  4. HYDROCHLOROTHIAZIDE [Suspect]
     Indication: ILL-DEFINED DISORDER
  5. POTASSIUM (POTASSIUM) [Suspect]
     Indication: ILL-DEFINED DISORDER
  6. LEVOTHYROXINE SODIUM [Suspect]
     Indication: ILL-DEFINED DISORDER
  7. ATENOLOL [Concomitant]
  8. LITHIUM CARBONATE [Concomitant]
  9. LITHIUM (LITHIUM) [Concomitant]
  10. LEVOTHYROXINE SODIUM [Concomitant]
  11. FUROSEMIDE [Concomitant]
  12. RANITIDINE [Concomitant]
  13. ALL OTHER THERAPEUTIC PRODUCTS (ALL OTHER THERAPEUTIC PRODUCTS) [Concomitant]
  14. DYAZIDE [Concomitant]
  15. GARLIC (GARLIC) [Concomitant]
  16. IBUPROFEN [Concomitant]
  17. THOMAPYRIN N (ACETYLSALICYLIC ACID, CAFFEINE, PARACETAMOL) [Concomitant]
  18. ASCORBIC ACID [Concomitant]
  19. IMIPRAMINE [Concomitant]

REACTIONS (70)
  - ABNORMAL BEHAVIOUR [None]
  - ALOPECIA [None]
  - ANTIPSYCHOTIC DRUG LEVEL BELOW THERAPEUTIC [None]
  - ANTIPSYCHOTIC DRUG LEVEL INCREASED [None]
  - ARRHYTHMIA [None]
  - ARTHRALGIA [None]
  - ASTHENIA [None]
  - ATRIAL FIBRILLATION [None]
  - ATRIAL FLUTTER [None]
  - BLOOD BILIRUBIN INCREASED [None]
  - BLOOD CALCIUM INCREASED [None]
  - BLOOD CREATINE PHOSPHOKINASE ABNORMAL [None]
  - BLOOD GLUCOSE INCREASED [None]
  - BLOOD THYROID STIMULATING HORMONE INCREASED [None]
  - BRADYCARDIA [None]
  - BUNDLE BRANCH BLOCK RIGHT [None]
  - CHEST DISCOMFORT [None]
  - CHEST PAIN [None]
  - CONCUSSION [None]
  - CONSTIPATION [None]
  - CONTUSION [None]
  - DIFFICULTY IN WALKING [None]
  - DIZZINESS [None]
  - DIZZINESS POSTURAL [None]
  - DRY MOUTH [None]
  - DYSPNOEA [None]
  - ERYTHEMA [None]
  - EUPHORIC MOOD [None]
  - EXCORIATION [None]
  - EYE DISORDER [None]
  - EYE SWELLING [None]
  - FACE INJURY [None]
  - FALL [None]
  - FEELING ABNORMAL [None]
  - FOOD CRAVING [None]
  - GLUCOSE TOLERANCE IMPAIRED [None]
  - HEADACHE [None]
  - HEAT EXHAUSTION [None]
  - HYPERTENSION [None]
  - HYPOACUSIS [None]
  - HYPOKALAEMIA [None]
  - HYPOMANIA [None]
  - INDIFFERENCE [None]
  - JOINT SPRAIN [None]
  - MUSCLE INJURY [None]
  - MUSCLE SPASMS [None]
  - MUSCULOSKELETAL STIFFNESS [None]
  - NASAL SINUS DRAINAGE [None]
  - NAUSEA [None]
  - NERVE INJURY [None]
  - NERVOUS SYSTEM DISORDER [None]
  - NOCTURIA [None]
  - OEDEMA PERIPHERAL [None]
  - ORTHOPNOEA [None]
  - OSTEOPOROSIS [None]
  - PAIN [None]
  - PALPITATIONS [None]
  - PANIC DISORDER [None]
  - PARAESTHESIA [None]
  - PERIORBITAL HAEMATOMA [None]
  - POLYDIPSIA [None]
  - POLYURIA [None]
  - SCAB [None]
  - SKIN LESION [None]
  - SLEEP DISORDER [None]
  - SOMNOLENCE [None]
  - SWELLING [None]
  - SYNCOPE [None]
  - TINNITUS [None]
  - URINARY TRACT INFECTION [None]
